FAERS Safety Report 8875662 (Version 2)
Quarter: 2012Q4

REPORT INFORMATION
  Report Type: 
  Country: ZA (occurrence: ZA)
  Receive Date: 20121023
  Receipt Date: 20121101
  Transmission Date: 20130627
  Serious: Yes (Death, Hospitalization)
  Sender: FDA-Public Use
  Company Number: PHHO2012ZA015125

PATIENT
  Sex: Male
  Weight: 72.2 kg

DRUGS (10)
  1. ALISKIREN [Suspect]
     Indication: CARDIOVASCULAR DISORDER
     Dosage: UNK
     Route: 048
     Dates: start: 20100119, end: 20111220
  2. METHYLDOPA [Concomitant]
     Indication: HYPERTENSION
     Dosage: 500 mg, BID
     Dates: start: 20110413
  3. ATENOLOL [Concomitant]
     Indication: HYPERTENSION
     Dosage: 50 mg, daily
     Dates: start: 20110413
  4. VITAMIN B NOS [Concomitant]
     Indication: SUPPLEMENTATION THERAPY
     Dosage: 2 DF, daily
     Dates: start: 20110413
  5. ISOSORBIDE [Concomitant]
     Indication: ANGINA PECTORIS
     Dosage: 20 mg, BID
     Dates: start: 20111217
  6. METFORMIN [Concomitant]
     Indication: DIABETES MELLITUS
     Dosage: 350 mg, BID
  7. ANGISED [Concomitant]
     Indication: MYOCARDIAL ISCHAEMIA
     Dosage: 25 mg, PRN
     Dates: start: 200909
  8. DISPRIN [Concomitant]
     Indication: MYOCARDIAL ISCHAEMIA
     Dosage: 50 mg, QD
     Dates: start: 200909
  9. NIFEDIPINE [Concomitant]
     Indication: HYPERTENSION
     Dosage: 70 mg, QD
     Dates: start: 20110413
  10. SIMVASTATIN [Concomitant]
     Indication: MYOCARDIAL ISCHAEMIA
     Dosage: 20 mg, QD (nocte)
     Dates: start: 20110413

REACTIONS (1)
  - Myocardial ischaemia [Fatal]
